FAERS Safety Report 15153380 (Version 1)
Quarter: 2018Q3

REPORT INFORMATION
  Report Type: Spontaneous
  Country: KR (occurrence: KR)
  Receive Date: 20180717
  Receipt Date: 20180717
  Transmission Date: 20181010
  Serious: Yes (Life-Threatening, Hospitalization, Other)
  Sender: FDA-Public Use
  Company Number: KR-MYLANLABS-2018M1051178

PATIENT
  Age: 40 Year
  Sex: Male
  Weight: 140 kg

DRUGS (12)
  1. REMIFENTANIL [Suspect]
     Active Substance: REMIFENTANIL
     Indication: ANAESTHESIA
     Route: 065
  2. EPINEPHRINE. [Suspect]
     Active Substance: EPINEPHRINE
     Indication: ASPHYXIA
  3. SALBUTAMOL [Suspect]
     Active Substance: ALBUTEROL
     Indication: BRONCHOSPASM
  4. METHYLPREDNISOLONE. [Suspect]
     Active Substance: METHYLPREDNISOLONE
     Indication: ASPHYXIA
  5. LABETALOL [Concomitant]
     Active Substance: LABETALOL\LABETALOL HYDROCHLORIDE
     Indication: PRODUCT USED FOR UNKNOWN INDICATION
     Route: 065
  6. GLYCOPYRROLATE                     /00196201/ [Concomitant]
     Active Substance: GLYCOPYRRONIUM
     Indication: PRODUCT USED FOR UNKNOWN INDICATION
     Route: 030
  7. ROCURONIUM [Suspect]
     Active Substance: ROCURONIUM BROMIDE
     Indication: ANAESTHESIA
     Route: 065
  8. EPINEPHRINE. [Suspect]
     Active Substance: EPINEPHRINE
     Indication: BRONCHOSPASM
     Route: 058
  9. SALBUTAMOL [Suspect]
     Active Substance: ALBUTEROL
     Indication: ASPHYXIA
     Route: 045
  10. METHYLPREDNISOLONE. [Suspect]
     Active Substance: METHYLPREDNISOLONE
     Indication: BRONCHOSPASM
     Route: 042
  11. NICARDIPINE [Concomitant]
     Active Substance: NICARDIPINE
     Indication: PRODUCT USED FOR UNKNOWN INDICATION
     Route: 065
  12. PROPOFOL. [Suspect]
     Active Substance: PROPOFOL
     Indication: ANAESTHESIA
     Route: 065

REACTIONS (6)
  - Status asthmaticus [Recovered/Resolved]
  - Drug ineffective [Unknown]
  - Hypoxia [Recovered/Resolved]
  - Bradycardia [Recovered/Resolved]
  - Hypotension [Recovered/Resolved]
  - Respiratory acidosis [Recovered/Resolved]
